FAERS Safety Report 24044891 (Version 1)
Quarter: 2024Q3

REPORT INFORMATION
  Report Type: Report from Study
  Country: US (occurrence: US)
  Receive Date: 20240703
  Receipt Date: 20240703
  Transmission Date: 20241016
  Serious: Yes (Other)
  Sender: UCB
  Company Number: US-UCBSA-2024005011

PATIENT
  Age: 39 Year
  Sex: Male

DRUGS (1)
  1. BIMEKIZUMAB [Suspect]
     Active Substance: BIMEKIZUMAB
     Indication: Product used for unknown indication
     Dosage: 320 MILLIGRAM, EV 4 WEEKS AT WEEK 0, 4, 8, 12 AND 16 WEEKS
     Route: 058
     Dates: start: 20240129, end: 20240402

REACTIONS (7)
  - HIV infection [Unknown]
  - Injection site pain [Recovered/Resolved]
  - Injection site swelling [Not Recovered/Not Resolved]
  - Injection site pruritus [Not Recovered/Not Resolved]
  - Product administered at inappropriate site [Unknown]
  - Drug ineffective [Unknown]
  - Insurance issue [Unknown]

NARRATIVE: CASE EVENT DATE: 20240129
